FAERS Safety Report 8062233-5 (Version None)
Quarter: 2012Q1

REPORT INFORMATION
  Report Type: 
  Country: None (occurrence: None)
  Receive Date: 20120118
  Receipt Date: 20120106
  Transmission Date: 20120608
  Serious: Yes (Death, Hospitalization)
  Sender: FDA-Public Use
  Company Number: 2012HGS-003099

PATIENT
  Age: 57 Year
  Sex: Female

DRUGS (4)
  1. BENLYSTA [Suspect]
     Indication: SYSTEMIC LUPUS ERYTHEMATOSUS
     Dosage: 10 MG/KG, INTRAVENOUS DRIP
     Route: 041
     Dates: start: 20111206
  2. METHOTREXATE [Concomitant]
  3. PLAQUENIL (HYDROXYCHLOROQUINE SULFATE) (HYDROXYCHLOROQUINE SULFATE) [Concomitant]
  4. PREDNISONE [Concomitant]

REACTIONS (4)
  - BLOOD GLUCOSE DECREASED [None]
  - PYREXIA [None]
  - SEPTIC SHOCK [None]
  - DYSPNOEA [None]
